FAERS Safety Report 9666046 (Version 2)
Quarter: 2014Q1

REPORT INFORMATION
  Report Type: Spontaneous
  Country: US (occurrence: US)
  Receive Date: 20131104
  Receipt Date: 20140107
  Transmission Date: 20141002
  Serious: No
  Sender: FDA-Public Use
  Company Number: US-BIOGENIDEC-2013BI103965

PATIENT
  Age: 28 Year
  Sex: Male

DRUGS (2)
  1. TYSABRI [Suspect]
     Indication: MULTIPLE SCLEROSIS
     Route: 042
     Dates: start: 20120626
  2. DECADRON [Concomitant]

REACTIONS (3)
  - Multiple sclerosis relapse [Recovered/Resolved]
  - Central nervous system lesion [Recovered/Resolved]
  - Gait disturbance [Recovered/Resolved]
